FAERS Safety Report 5426471-X (Version None)
Quarter: 2007Q3

REPORT INFORMATION
  Report Type: 
  Country: None (occurrence: None)
  Receive Date: 20070827
  Receipt Date: 20070824
  Transmission Date: 20080115
  Serious: Yes (Congenital Anomaly)
  Sender: FDA-Public Use
  Company Number: AUWYE213224AUG07

PATIENT
  Sex: Female
  Weight: 3.31 kg

DRUGS (1)
  1. EFFEXOR XR [Suspect]
     Indication: DEPRESSION
     Dosage: 150 MG
     Route: 064
     Dates: start: 20060101

REACTIONS (1)
  - CONGENITAL DIAPHRAGMATIC HERNIA [None]
